FAERS Safety Report 5814888-0 (Version None)
Quarter: 2008Q3

REPORT INFORMATION
  Report Type: 
  Country: None (occurrence: None)
  Receive Date: 20080718
  Receipt Date: 20080717
  Transmission Date: 20090109
  Serious: Yes (Other)
  Sender: FDA-Public Use
  Company Number: A0738105A

PATIENT
  Age: 44 Year
  Sex: Female
  Weight: 84.1 kg

DRUGS (2)
  1. ALLI [Suspect]
     Indication: DRUG USE FOR UNKNOWN INDICATION
     Dates: start: 20080713, end: 20080715
  2. NO CONCURRENT MEDICATION [Concomitant]

REACTIONS (3)
  - PAIN [None]
  - RECTAL DISCHARGE [None]
  - RECTAL HAEMORRHAGE [None]
